FAERS Safety Report 5919191-6 (Version None)
Quarter: 2008Q4

REPORT INFORMATION
  Report Type: 
  Country: None (occurrence: None)
  Receive Date: 20081015
  Receipt Date: 20081008
  Transmission Date: 20090506
  Serious: Yes (Hospitalization, Other)
  Sender: FDA-Public Use
  Company Number: JP-ASTRAZENECA-2008SE04708

PATIENT
  Age: 80 Year
  Sex: Male

DRUGS (3)
  1. BLOPRESS [Suspect]
     Indication: HYPERTENSION
     Route: 048
     Dates: start: 20070701, end: 20081003
  2. AMLODIPINE [Concomitant]
     Route: 048
  3. DRUGS FOR TREATMENT OF PEPTIC ULCER [Concomitant]
     Route: 065

REACTIONS (2)
  - INTERSTITIAL LUNG DISEASE [None]
  - RHABDOMYOLYSIS [None]
